FAERS Safety Report 26122318 (Version 1)
Quarter: 2025Q4

REPORT INFORMATION
  Report Type: Spontaneous
  Country: US (occurrence: None)
  Receive Date: 20251204
  Receipt Date: 20251204
  Transmission Date: 20260118
  Serious: No
  Sender: HALOZYME
  Company Number: US-HALOZYME THERAPEUTICS, INC.-2025-US-HYL-00108

PATIENT
  Age: 38 Year

DRUGS (1)
  1. HYLENEX RECOMBINANT [Suspect]
     Active Substance: HYALURONIDASE (HUMAN RECOMBINANT)
     Indication: Dermal filler overcorrection
     Dosage: 1 VIAL

REACTIONS (7)
  - Skin laxity [Recovering/Resolving]
  - Asthenia [Recovering/Resolving]
  - Gingival recession [Recovering/Resolving]
  - Asthenia [Recovering/Resolving]
  - Weight decreased [Recovering/Resolving]
  - Fatigue [Recovering/Resolving]
  - Off label use [Unknown]
